FAERS Safety Report 9631776 (Version 1)
Quarter: 2013Q4

REPORT INFORMATION
  Report Type: Spontaneous
  Country: DE (occurrence: None)
  Receive Date: 20131015
  Receipt Date: 20131015
  Transmission Date: 20140711
  Serious: Yes (Other)
  Sender: FDA-Public Use
  Company Number: 2012273148

PATIENT
  Sex: Female

DRUGS (1)
  1. FRAGMIN P [Suspect]
     Route: 064

REACTIONS (1)
  - Foetal death [None]
